FAERS Safety Report 7893441-1 (Version None)
Quarter: 2011Q4

REPORT INFORMATION
  Report Type: 
  Country: None (occurrence: None)
  Receive Date: 20111104
  Receipt Date: 20111024
  Transmission Date: 20120403
  Serious: Yes (Other)
  Sender: FDA-Public Use
  Company Number: CA-ROCHE-1008483

PATIENT
  Sex: Female

DRUGS (11)
  1. XOLAIR [Suspect]
     Indication: ASTHMA
     Route: 058
     Dates: start: 20090422
  2. ALENDRONATE SODIUM [Concomitant]
  3. SINGULAIR [Concomitant]
  4. ESCITALOPRAM [Concomitant]
  5. TRAZODONE HYDROCHLORIDE [Concomitant]
  6. ALVESCO [Concomitant]
  7. FLUTICASONE PROPIONATE [Concomitant]
  8. ALBUTEROL SULFATE AUTOHALER [Concomitant]
  9. ADVAIR DISKUS 100/50 [Concomitant]
  10. THEOPHYLLINE [Concomitant]
  11. OMEPRAZOLE [Concomitant]

REACTIONS (1)
  - OEDEMA [None]
